FAERS Safety Report 6241054-X (Version None)
Quarter: 2009Q2

REPORT INFORMATION
  Report Type: 
  Country: None (occurrence: None)
  Receive Date: 20090619
  Receipt Date: 20090605
  Transmission Date: 20091009
  Serious: Yes (Hospitalization, Other)
  Sender: FDA-Public Use
  Company Number: A-US2009-25243

PATIENT
  Age: 63 Year
  Sex: Female

DRUGS (7)
  1. TRACLEER [Suspect]
     Indication: PULMONARY ARTERIAL HYPERTENSION
     Dosage: 12 MG, BID, ORAL, 62.5 MG
     Route: 048
     Dates: end: 20090415
  2. TRACLEER [Suspect]
     Indication: PULMONARY ARTERIAL HYPERTENSION
     Dosage: 12 MG, BID, ORAL, 62.5 MG
     Route: 048
     Dates: start: 19990101
  3. ASPIRIN [Concomitant]
  4. LISNIOPRIL [Concomitant]
  5. FLUCONAZOLE [Concomitant]
  6. LEVOTHYROXINE SODIUM [Concomitant]
  7. ATNEOLOL [Concomitant]

REACTIONS (6)
  - AUTOIMMUNE HEPATITIS [None]
  - CHOLECYSTITIS CHRONIC [None]
  - CHOLELITHIASIS [None]
  - HEPATIC FIBROSIS [None]
  - HEPATIC NECROSIS [None]
  - SMOOTH MUSCLE ANTIBODY POSITIVE [None]
